FAERS Safety Report 10139290 (Version 1)
Quarter: 2014Q2

REPORT INFORMATION
  Report Type: Spontaneous
  Country: JP (occurrence: JP)
  Receive Date: 20140429
  Receipt Date: 20140429
  Transmission Date: 20141212
  Serious: Yes (Hospitalization)
  Sender: FDA-Public Use
  Company Number: PHHY2014JP050882

PATIENT
  Sex: Female

DRUGS (1)
  1. SLOW K [Suspect]
     Indication: HYPOKALAEMIA
     Dosage: 0.5 DF, (300 MG) DAILY
     Route: 048

REACTIONS (2)
  - Diabetes mellitus [Unknown]
  - Wrong technique in drug usage process [Unknown]
